FAERS Safety Report 6664242-7 (Version None)
Quarter: 2010Q2

REPORT INFORMATION
  Report Type: 
  Country: None (occurrence: None)
  Receive Date: 20100401
  Receipt Date: 20100322
  Transmission Date: 20101027
  Serious: Yes (Hospitalization)
  Sender: FDA-Public Use
  Company Number: PHHY2010GB13279

PATIENT
  Sex: Male
  Weight: 68.5 kg

DRUGS (7)
  1. CLOZARIL [Suspect]
     Indication: SCHIZOPHRENIA
     Dosage: UNK
     Dates: start: 20100126
  2. CLOZARIL [Suspect]
     Dosage: 37.5 MG, UNK
     Route: 048
     Dates: start: 20100209
  3. ASPIRIN [Concomitant]
     Dosage: 300 MG, UNK
     Route: 048
  4. RANITIDINE [Concomitant]
     Dosage: 150 MG, UNK
     Route: 048
  5. SOTALOL HCL [Concomitant]
     Dosage: 40 MG, UNK
     Route: 048
  6. SERTRALINE HCL [Concomitant]
     Indication: DEPRESSION
     Dosage: 150 MG, UNK
     Route: 048
  7. DIPYRIDAMOLE [Concomitant]
     Dosage: 200 MG, UNK

REACTIONS (4)
  - ASTHENIA [None]
  - EXTENSOR PLANTAR RESPONSE [None]
  - FACIAL PARESIS [None]
  - TRANSIENT ISCHAEMIC ATTACK [None]
